FAERS Safety Report 20649635 (Version 1)
Quarter: 2022Q1

REPORT INFORMATION
  Report Type: Spontaneous
  Country: US (occurrence: US)
  Receive Date: 20220329
  Receipt Date: 20220329
  Transmission Date: 20220423
  Serious: No
  Sender: FDA-Public Use
  Company Number: US-HISAMITSU-2021-US-024211

PATIENT
  Age: 89 Year
  Sex: Female
  Weight: 44.45 kg

DRUGS (3)
  1. SALONPAS PAIN RELIEF [Suspect]
     Active Substance: MENTHOL\METHYL SALICYLATE
     Indication: Analgesic therapy
     Dosage: 1 PATCH APPLIED TO LOWER BACK
     Route: 061
     Dates: start: 20211102, end: 20211103
  2. CALCIUM [Concomitant]
     Active Substance: CALCIUM
  3. VITAMINS [Concomitant]
     Active Substance: VITAMINS

REACTIONS (1)
  - Drug ineffective [Unknown]

NARRATIVE: CASE EVENT DATE: 20211102
